FAERS Safety Report 6963841-2 (Version None)
Quarter: 2010Q3

REPORT INFORMATION
  Report Type: 
  Country: None (occurrence: None)
  Receive Date: 20100902
  Receipt Date: 20100827
  Transmission Date: 20110219
  Serious: Yes (Death, Other)
  Sender: FDA-Public Use
  Company Number: US-ABBOTT-10P-163-0657612-00

PATIENT
  Sex: Female

DRUGS (16)
  1. VICODIN [Suspect]
     Indication: BACK PAIN
     Dosage: UNKNOWN
  2. VICODIN [Suspect]
     Dosage: ACCIDENTAL OVERDOSE: UNKNOWN DOSE
  3. LEXAPRO [Suspect]
     Indication: DEPRESSION
     Route: 048
     Dates: end: 20100602
  4. LEXAPRO [Suspect]
     Route: 048
     Dates: start: 20100603, end: 20100605
  5. LEXAPRO [Suspect]
     Route: 048
     Dates: start: 20100606
  6. LEXAPRO [Suspect]
     Dosage: ACCIDENTAL OVERDOSE: UNKNOWN DOSE
     Route: 048
     Dates: start: 20100101
  7. SEROQUEL [Suspect]
     Indication: BIPOLAR DISORDER
     Route: 048
     Dates: end: 20100323
  8. SEROQUEL [Suspect]
     Dosage: ACCIDENTAL OVERDOSE: UNKNOWN DOSE
     Route: 048
     Dates: start: 20100324
  9. SEROQUEL [Suspect]
     Dates: start: 20100101, end: 20100101
  10. XANAX [Suspect]
     Indication: ANXIETY
     Dosage: UNKNOWN
     Dates: start: 20100119
  11. XANAX [Suspect]
     Dosage: ACCIDENTAL OVERDOSE: UNKNOWN DOSE
  12. ALCOHOL [Suspect]
     Indication: PRODUCT USED FOR UNKNOWN INDICATION
     Route: 048
  13. TRAZODONE HCL [Concomitant]
     Indication: PRODUCT USED FOR UNKNOWN INDICATION
     Dates: start: 20091229
  14. ULTRAM [Concomitant]
     Indication: PRODUCT USED FOR UNKNOWN INDICATION
     Route: 048
     Dates: start: 20091229
  15. IMITREX [Concomitant]
     Indication: PRODUCT USED FOR UNKNOWN INDICATION
     Route: 048
     Dates: start: 20100506
  16. SKELAXIN [Concomitant]
     Indication: PRODUCT USED FOR UNKNOWN INDICATION
     Route: 048
     Dates: start: 20100609

REACTIONS (2)
  - ACCIDENTAL OVERDOSE [None]
  - MANIA [None]
